FAERS Safety Report 7632443-7 (Version None)
Quarter: 2011Q3

REPORT INFORMATION
  Report Type: 
  Country: None (occurrence: None)
  Receive Date: 20110725
  Receipt Date: 20100909
  Transmission Date: 20111222
  Serious: Yes (Other)
  Sender: FDA-Public Use
  Company Number: US-BRISTOL-MYERS SQUIBB COMPANY-15278542

PATIENT
  Age: 83 Year
  Sex: Male

DRUGS (7)
  1. COUMADIN [Suspect]
     Indication: ATRIAL FIBRILLATION
     Dates: start: 20100701
  2. ALLOPURINOL [Concomitant]
  3. DIGOXIN [Concomitant]
  4. CARDURA [Concomitant]
  5. FERROUS SULFATE TAB [Concomitant]
  6. LIPITOR [Concomitant]
  7. ATENOLOL [Concomitant]

REACTIONS (1)
  - INTERNATIONAL NORMALISED RATIO DECREASED [None]
